FAERS Safety Report 4482410-X (Version None)
Quarter: 2004Q4

REPORT INFORMATION
  Report Type: 
  Country: None (occurrence: None)
  Receive Date: 20041022
  Receipt Date: 20040721
  Transmission Date: 20050328
  Serious: No
  Sender: FDA-Public Use
  Company Number: US-BRISTOL-MYERS SQUIBB COMPANY-12648408

PATIENT
  Age: 40 Year
  Sex: Female
  Weight: 45 kg

DRUGS (2)
  1. BUSPAR [Suspect]
     Indication: ANGER
     Dosage: DOSE REPEATEDLY CHANGED UNTIL 06-DEC-01, WHEN PHYSICIAN ADVISED TO TAPER BY 15MG DAILY UNTIL STOPPED
     Route: 048
     Dates: start: 20000331
  2. RISPERDAL [Suspect]
     Dates: end: 20000101

REACTIONS (2)
  - DYSTONIA [None]
  - TARDIVE DYSKINESIA [None]
